FAERS Safety Report 10250997 (Version 1)
Quarter: 2014Q2

REPORT INFORMATION
  Report Type: Spontaneous
  Country: US (occurrence: US)
  Receive Date: 20140620
  Receipt Date: 20140620
  Transmission Date: 20141212
  Serious: No
  Sender: FDA-Public Use
  Company Number: US-009507513-1406USA008352

PATIENT
  Sex: Female

DRUGS (2)
  1. ISENTRESS [Suspect]
     Indication: EXPOSURE TO BODY FLUID
     Dosage: 400 MG, TWICE DAILY
     Route: 048
     Dates: start: 20140609, end: 20140614
  2. TRUVADA [Concomitant]
     Dosage: UNK
     Dates: start: 20140609

REACTIONS (4)
  - Feeling cold [Not Recovered/Not Resolved]
  - Restlessness [Not Recovered/Not Resolved]
  - Chromaturia [Not Recovered/Not Resolved]
  - Wrong technique in drug usage process [Unknown]
